FAERS Safety Report 4661203-4 (Version None)
Quarter: 2005Q2

REPORT INFORMATION
  Report Type: 
  Country: None (occurrence: None)
  Receive Date: 20050513
  Receipt Date: 20050407
  Transmission Date: 20051028
  Serious: Yes (Death, Life-Threatening, Hospitalization, Other)
  Sender: FDA-Public Use
  Company Number: US-BRISTOL-MYERS SQUIBB COMPANY-12926523

PATIENT
  Age: 57 Year
  Sex: Male

DRUGS (8)
  1. CISPLATIN [Suspect]
     Route: 042
     Dates: start: 20040806, end: 20040903
  2. LORAZEPAM [Concomitant]
     Indication: NAUSEA
     Route: 048
     Dates: start: 20040813
  3. DEXAMETHASONE [Concomitant]
     Indication: PROPHYLAXIS OF NAUSEA AND VOMITING
     Route: 048
     Dates: start: 20040903, end: 20040907
  4. XANAX [Concomitant]
     Indication: INSOMNIA
     Route: 048
     Dates: start: 20040916
  5. PERCOCET [Concomitant]
     Indication: ABDOMINAL PAIN
     Route: 048
     Dates: start: 20040701
  6. NEXIUM [Concomitant]
     Indication: ABDOMINAL PAIN
     Route: 048
     Dates: start: 20040909
  7. EMEND [Concomitant]
     Indication: PROPHYLAXIS OF NAUSEA AND VOMITING
     Route: 048
     Dates: start: 20040903, end: 20040903
  8. ZOFRAN [Concomitant]
     Indication: PROPHYLAXIS OF NAUSEA AND VOMITING
     Route: 048
     Dates: start: 20040903, end: 20040907

REACTIONS (17)
  - ANOREXIA [None]
  - ANOXIC ENCEPHALOPATHY [None]
  - ATRIAL FIBRILLATION [None]
  - BLINDNESS [None]
  - CARDIAC ARREST [None]
  - COLLAPSE OF LUNG [None]
  - DEHYDRATION [None]
  - DIARRHOEA [None]
  - DISSEMINATED INTRAVASCULAR COAGULATION [None]
  - DUODENAL ULCER PERFORATION [None]
  - FATIGUE [None]
  - NAUSEA [None]
  - NEUTROPENIA [None]
  - PULMONARY EMBOLISM [None]
  - RESPIRATORY FAILURE [None]
  - SEPSIS [None]
  - WEIGHT DECREASED [None]
